FAERS Safety Report 8276205-9 (Version None)
Quarter: 2012Q2

REPORT INFORMATION
  Report Type: 
  Country: None (occurrence: None)
  Receive Date: 20120412
  Receipt Date: 20120407
  Transmission Date: 20120825
  Serious: Yes (Death, Hospitalization, Other)
  Sender: FDA-Public Use
  Company Number: US-ASTELLAS-2012US003455

PATIENT
  Sex: Male
  Weight: 62 kg

DRUGS (2)
  1. ERLOTINIB HYDROCHLORIDE [Suspect]
     Indication: ADENOCARCINOMA PANCREAS
     Dosage: 100 MG, UID/QD
     Route: 048
     Dates: start: 20120111
  2. GEMCITABINE [Suspect]
     Indication: ADENOCARCINOMA PANCREAS
     Dosage: 1000 MG/M2, WEEKLY FOR WEEKS 1 TO 3
     Route: 042
     Dates: start: 20120111

REACTIONS (5)
  - URINARY TRACT INFECTION FUNGAL [None]
  - SEPSIS [None]
  - HYPOVOLAEMIA [None]
  - NEUTROPENIA [None]
  - ACUTE RESPIRATORY DISTRESS SYNDROME [None]
